FAERS Safety Report 9653168 (Version 2)
Quarter: 2013Q4

REPORT INFORMATION
  Report Type: Spontaneous
  Country: US (occurrence: US)
  Receive Date: 20131029
  Receipt Date: 20131106
  Transmission Date: 20140711
  Serious: Yes (Other)
  Sender: FDA-Public Use
  Company Number: US-GLAXOSMITHKLINE-A1041587A

PATIENT
  Age: 47 Year
  Sex: Female
  Weight: 63.6 kg

DRUGS (5)
  1. IMITREX [Suspect]
     Indication: MIGRAINE
     Route: 065
     Dates: start: 2003
  2. CORTEF [Suspect]
     Indication: ADDISON^S DISEASE
     Dosage: 10MG UNKNOWN
     Route: 048
  3. HYDROCORTISONE [Suspect]
     Indication: ADDISON^S DISEASE
     Dosage: 20MG TWICE PER DAY
     Route: 065
  4. PREDNISONE [Suspect]
     Indication: PRODUCT USED FOR UNKNOWN INDICATION
     Dosage: 100MG UNKNOWN
  5. CORTISONE ACETATE [Suspect]
     Indication: ADDISON^S DISEASE

REACTIONS (7)
  - Suicidal ideation [Recovered/Resolved]
  - Product formulation issue [Recovered/Resolved]
  - Psychotic disorder [Recovered/Resolved]
  - Fall [Recovered/Resolved]
  - Tooth fracture [Unknown]
  - Malaise [Unknown]
  - Headache [Unknown]
